FAERS Safety Report 17773071 (Version 2)
Quarter: 2020Q2

REPORT INFORMATION
  Report Type: Report from Study
  Country: US (occurrence: US)
  Receive Date: 20200512
  Receipt Date: 20200604
  Transmission Date: 20200714
  Serious: Yes (Death, Hospitalization, Other)
  Sender: FDA-Public Use
  Company Number: US-ACTELION-A-NJ2018-180688

PATIENT
  Age: 85 Year
  Sex: Female
  Weight: 62.13 kg

DRUGS (45)
  1. ADVAIR HFA [Concomitant]
     Active Substance: FLUTICASONE PROPIONATE\SALMETEROL XINAFOATE
     Dosage: UNK
     Dates: start: 2013
  2. LOPRESSOR [Concomitant]
     Active Substance: METOPROLOL TARTRATE
     Dosage: UNK
     Dates: start: 20180820
  3. ZANTAC [Concomitant]
     Active Substance: RANITIDINE HYDROCHLORIDE
     Dosage: UNK
     Dates: start: 201806
  4. FLUTICASONE. [Concomitant]
     Active Substance: FLUTICASONE
     Dosage: UNK
     Dates: start: 2019
  5. LIPITOR [Concomitant]
     Active Substance: ATORVASTATIN CALCIUM
     Dosage: 10 MG
     Route: 048
  6. COUMADIN [Suspect]
     Active Substance: WARFARIN SODIUM
     Indication: ATRIAL FIBRILLATION
     Dosage: UNK
     Route: 065
     Dates: start: 2011
  7. ADEMPAS [Concomitant]
     Active Substance: RIOCIGUAT
     Dosage: UNK
     Dates: start: 20161101
  8. COLCRYS [Concomitant]
     Active Substance: COLCHICINE
     Dosage: UNK
     Dates: start: 2013
  9. ZYRTEC [Concomitant]
     Active Substance: CETIRIZINE HYDROCHLORIDE
     Dosage: UNK
     Dates: start: 2016
  10. FAMOTIDINE. [Concomitant]
     Active Substance: FAMOTIDINE
     Dosage: UNK
     Dates: start: 20200310
  11. NITROSTAT [Concomitant]
     Active Substance: NITROGLYCERIN
     Dosage: 0.4 MG
     Route: 060
  12. PROCRIT [Concomitant]
     Active Substance: ERYTHROPOIETIN
     Dosage: 1 ML
     Route: 058
  13. OMEPRAZOLE. [Concomitant]
     Active Substance: OMEPRAZOLE
     Dosage: UNK
     Dates: start: 20170112
  14. ESTRACE [Concomitant]
     Active Substance: ESTRADIOL
     Dosage: 1 G
     Route: 067
     Dates: start: 20171020
  15. FENOFIBRATE. [Concomitant]
     Active Substance: FENOFIBRATE
     Dosage: UNK
     Dates: start: 2019
  16. ACETAMINOPHEN. [Concomitant]
     Active Substance: ACETAMINOPHEN
     Dosage: 650 MG, PRN
     Route: 048
     Dates: start: 20200310
  17. HYDROXYZINE [Concomitant]
     Active Substance: HYDROXYZINE HYDROCHLORIDE
     Dosage: 10 MG, PRN
     Route: 048
     Dates: start: 20200315
  18. MIDODRINE [Concomitant]
     Active Substance: MIDODRINE
     Dosage: 10 MG, TID
     Route: 048
  19. UPTRAVI [Suspect]
     Active Substance: SELEXIPAG
     Indication: PULMONARY ARTERIAL HYPERTENSION
     Dosage: 200 MCG, BID
     Route: 048
     Dates: start: 20200326, end: 20200425
  20. TORSEMIDE. [Concomitant]
     Active Substance: TORSEMIDE
     Dosage: UNK
     Dates: start: 201806
  21. PERCOCET [Concomitant]
     Active Substance: ACETAMINOPHEN\OXYCODONE HYDROCHLORIDE
     Dosage: 2 TABS, TID
     Route: 048
  22. OXYGEN. [Concomitant]
     Active Substance: OXYGEN
     Dosage: UNK
     Dates: start: 201610
  23. MECLIZINE [Concomitant]
     Active Substance: MECLIZINE HYDROCHLORIDE
     Dosage: UNK
     Dates: start: 2016
  24. LEVOPHED [Concomitant]
     Active Substance: NOREPINEPHRINE BITARTRATE
     Dosage: 2 MCG, PER MIN
     Route: 065
  25. INSULIN LISPRO [Concomitant]
     Active Substance: INSULIN LISPRO
     Dosage: 100 UNITS/ML
     Route: 058
  26. ATORVASTATIN [Concomitant]
     Active Substance: ATORVASTATIN
     Dosage: UNK
     Dates: start: 201510
  27. OCUVITE [Concomitant]
     Active Substance: VITAMINS
  28. THERAGRAN [Concomitant]
     Active Substance: VITAMINS
     Dosage: UNK
     Dates: start: 2013
  29. IMODIUM [Concomitant]
     Active Substance: LOPERAMIDE HYDROCHLORIDE
     Dosage: UNK
     Dates: start: 201809
  30. CALCIUM CARBONATE. [Concomitant]
     Active Substance: CALCIUM CARBONATE
     Dosage: UNK
     Dates: start: 20200313
  31. EPOETIN ALFA [Concomitant]
     Active Substance: ERYTHROPOIETIN
     Dosage: UNK
     Dates: start: 20200316
  32. ERGOCALCIFEROL. [Concomitant]
     Active Substance: ERGOCALCIFEROL
     Dosage: 50000 IU
     Route: 048
  33. LIDODERM [Concomitant]
     Active Substance: LIDOCAINE
     Dosage: 5 %, QD
     Route: 061
  34. PHOSLO [Concomitant]
     Active Substance: CALCIUM ACETATE
     Dosage: 667 MG, TID
     Route: 048
  35. TRIAMCINOLONE [Concomitant]
     Active Substance: TRIAMCINOLONE
     Dosage: 0.1 %
     Route: 061
  36. UPTRAVI [Suspect]
     Active Substance: SELEXIPAG
     Dosage: 200 MCG, BID
     Route: 048
     Dates: start: 20180913
  37. ALLOPURINOL. [Concomitant]
     Active Substance: ALLOPURINOL
     Dosage: UNK
     Dates: start: 20170227
  38. SINGULAIR [Concomitant]
     Active Substance: MONTELUKAST SODIUM
     Dosage: UNK
     Dates: start: 2013
  39. XOPENEX [Concomitant]
     Active Substance: LEVALBUTEROL HYDROCHLORIDE
     Dosage: UNK
     Dates: start: 2013
  40. XOPENEX HFA [Concomitant]
     Active Substance: LEVALBUTEROL TARTRATE
     Dosage: UNK
     Dates: start: 2013
  41. PULMICORT TURBUHALER [Concomitant]
     Active Substance: BUDESONIDE
     Dosage: UNK
     Dates: start: 20200310
  42. METOPROLOL TARTRATE. [Concomitant]
     Active Substance: METOPROLOL TARTRATE
     Dosage: 25 MG, TID
     Route: 048
     Dates: start: 20200310
  43. PANTOPRAZOLE [Concomitant]
     Active Substance: PANTOPRAZOLE
     Dosage: 40 MG, QD
     Route: 048
  44. BUDESONIDE. [Concomitant]
     Active Substance: BUDESONIDE
     Dosage: 2 ML, BID
  45. ZYLOPRIM [Concomitant]
     Active Substance: ALLOPURINOL
     Dosage: 100 MG, QPM
     Route: 048

REACTIONS (81)
  - Oropharyngeal pain [Recovered/Resolved]
  - Hypophagia [Unknown]
  - Clostridium difficile colitis [Recovering/Resolving]
  - Packed red blood cell transfusion [Unknown]
  - Blood alkaline phosphatase [Unknown]
  - Syncope [Recovered/Resolved with Sequelae]
  - Influenza [Unknown]
  - Therapy non-responder [Unknown]
  - Brain natriuretic peptide increased [Unknown]
  - Atrial fibrillation [Recovering/Resolving]
  - Abdominal distension [Recovered/Resolved with Sequelae]
  - Culture urine positive [Unknown]
  - Blood urea increased [Unknown]
  - Dyspnoea exertional [Not Recovered/Not Resolved]
  - Haematocrit increased [Recovering/Resolving]
  - Diarrhoea [Unknown]
  - Vertigo [Unknown]
  - Weight increased [Not Recovered/Not Resolved]
  - Transferrin saturation decreased [Unknown]
  - Oxygen saturation decreased [Unknown]
  - Staphylococcal infection [Recovering/Resolving]
  - Haemorrhage [Recovering/Resolving]
  - Dysphagia [Recovered/Resolved]
  - Herpes zoster [Unknown]
  - Diabetes mellitus [Recovering/Resolving]
  - Pharyngitis streptococcal [Recovered/Resolved]
  - White blood cell count increased [Unknown]
  - Dialysis [Recovering/Resolving]
  - Hypovolaemia [Recovered/Resolved]
  - Staphylococcal sepsis [Unknown]
  - Blood albumin decreased [Unknown]
  - Orthopnoea [Recovered/Resolved]
  - Blood potassium decreased [Unknown]
  - Anaemia [Unknown]
  - Back pain [Unknown]
  - Fluid overload [Unknown]
  - Hyperparathyroidism [Unknown]
  - Aspartate aminotransferase increased [Unknown]
  - Thyroxine free increased [Unknown]
  - Serum ferritin increased [Unknown]
  - Shock haemorrhagic [Recovering/Resolving]
  - Chronic obstructive pulmonary disease [Recovering/Resolving]
  - Blood loss anaemia [Recovering/Resolving]
  - Death [Fatal]
  - End stage renal disease [Recovering/Resolving]
  - Red blood cell count decreased [Unknown]
  - Pyrexia [Recovering/Resolving]
  - Acute kidney injury [Recovered/Resolved]
  - Cardiac failure acute [Not Recovered/Not Resolved]
  - Oedema peripheral [Recovered/Resolved]
  - Cardiac failure congestive [Recovering/Resolving]
  - Abdominal pain [Recovered/Resolved with Sequelae]
  - Respiratory failure [Recovered/Resolved with Sequelae]
  - Pain in extremity [Unknown]
  - Hypotension [Recovering/Resolving]
  - Clostridium difficile infection [Unknown]
  - Cyanosis [Recovered/Resolved with Sequelae]
  - Blood osmolarity increased [Unknown]
  - Chronic kidney disease [Recovering/Resolving]
  - Blood iron decreased [Unknown]
  - Atelectasis [Recovered/Resolved with Sequelae]
  - Nausea [Unknown]
  - Haemoglobin decreased [Unknown]
  - Abdominal wall haematoma [Recovering/Resolving]
  - Blood creatinine increased [Unknown]
  - Blood calcium decreased [Unknown]
  - Blood chloride increased [Unknown]
  - Dyspnoea at rest [Recovered/Resolved]
  - Renal impairment [Unknown]
  - Pleural effusion [Recovered/Resolved with Sequelae]
  - Pain in jaw [Unknown]
  - Haematochezia [Unknown]
  - Hypokalaemia [Unknown]
  - Hypocalcaemia [Unknown]
  - Pain [Unknown]
  - Renal failure [Recovering/Resolving]
  - Escherichia urinary tract infection [Unknown]
  - Metabolic acidosis [Unknown]
  - Headache [Unknown]
  - Anaemia of chronic disease [Unknown]
  - Left ventricular failure [Recovering/Resolving]

NARRATIVE: CASE EVENT DATE: 201810
